FAERS Safety Report 22081884 (Version 1)
Quarter: 2023Q1

REPORT INFORMATION
  Report Type: Report from Study
  Country: BR (occurrence: BR)
  Receive Date: 20230310
  Receipt Date: 20230310
  Transmission Date: 20230418
  Serious: Yes (Other)
  Sender: FDA-Public Use
  Company Number: BR-JNJFOC-20230308790

PATIENT
  Age: 76 Year
  Sex: Male
  Weight: 86 kg

DRUGS (2)
  1. SIMPONI [Suspect]
     Active Substance: GOLIMUMAB
     Indication: Ankylosing spondylitis
     Route: 058
     Dates: start: 20180911
  2. SIMPONI [Suspect]
     Active Substance: GOLIMUMAB

REACTIONS (8)
  - Pneumonia [Unknown]
  - Influenza [Recovered/Resolved]
  - Aortic dilatation [Unknown]
  - COVID-19 [Recovered/Resolved]
  - Memory impairment [Unknown]
  - Cognitive disorder [Unknown]
  - Dysbiosis [Unknown]
  - Chronic obstructive pulmonary disease [Unknown]

NARRATIVE: CASE EVENT DATE: 20220101
